FAERS Safety Report 21631799 (Version 2)
Quarter: 2023Q1

REPORT INFORMATION
  Report Type: Report from Study
  Country: CA (occurrence: CA)
  Receive Date: 20221123
  Receipt Date: 20230109
  Transmission Date: 20230418
  Serious: No
  Sender: FDA-Public Use
  Company Number: CA-JNJFOC-20221008396

PATIENT
  Age: 16 Year
  Sex: Female
  Weight: 57.3 kg

DRUGS (2)
  1. REMICADE [Suspect]
     Active Substance: INFLIXIMAB
     Indication: Colitis ulcerative
     Dosage: REMICADE 600MG WEEK 0, 1, 4 AND EVERY 4 WEEKS. GOT WEEK 0 DOSE ON 14-OCT-2022 AND WEEK 1 DOSE ON 21-
     Route: 042
     Dates: start: 20221014
  2. REMICADE [Suspect]
     Active Substance: INFLIXIMAB
     Dosage: RE-INDUCTION OF 600MG AT WEEK 0, 1, 4 COUNTING ORIGINAL WEEK 4 AS WEEK 0.
     Route: 042

REACTIONS (1)
  - Off label use [Unknown]

NARRATIVE: CASE EVENT DATE: 20221014
